FAERS Safety Report 7438293-9 (Version None)
Quarter: 2011Q2

REPORT INFORMATION
  Report Type: 
  Country: None (occurrence: None)
  Receive Date: 20110426
  Receipt Date: 20110414
  Transmission Date: 20111010
  Serious: Yes (Other)
  Sender: FDA-Public Use
  Company Number: FR-BAYER-2011-033233

PATIENT
  Age: 88 Year
  Sex: Female

DRUGS (7)
  1. COVERSYL [Concomitant]
     Dosage: UNK
     Dates: end: 20110112
  2. ROCEPHIN [Suspect]
     Dosage: 1 G, UNK
     Route: 042
     Dates: start: 20110112
  3. CIFLOX [Suspect]
     Indication: PYELONEPHRITIS ACUTE
     Dosage: UNK
     Route: 048
     Dates: start: 20110110, end: 20110112
  4. PREVISCAN [Suspect]
     Indication: ARRHYTHMIA
     Dosage: 20 MG, QD
     Route: 048
     Dates: end: 20110112
  5. FLAGYL [Concomitant]
     Dosage: UNK
     Dates: start: 20110111
  6. KEPPRA [Concomitant]
     Dosage: UNK
     Dates: end: 20110112
  7. ROCEPHIN [Suspect]
     Indication: PYELONEPHRITIS ACUTE
     Dosage: 2 G, UNK
     Route: 042
     Dates: end: 20110112

REACTIONS (1)
  - INTERNATIONAL NORMALISED RATIO INCREASED [None]
